FAERS Safety Report 25262540 (Version 1)
Quarter: 2025Q2

REPORT INFORMATION
  Report Type: Spontaneous
  Country: JP (occurrence: JP)
  Receive Date: 20250502
  Receipt Date: 20250502
  Transmission Date: 20250717
  Serious: Yes (Other)
  Sender: HALEON
  Company Number: JP-002147023-NVSJ2025JP004837

PATIENT
  Age: 85 Year
  Sex: Female

DRUGS (1)
  1. VOLTAREN [Suspect]
     Active Substance: DICLOFENAC SODIUM
     Indication: Product used for unknown indication
     Route: 048
     Dates: start: 202405, end: 202405

REACTIONS (2)
  - Acute kidney injury [Unknown]
  - Encephalopathy [Unknown]
